FAERS Safety Report 8610197-5 (Version None)
Quarter: 2012Q3

REPORT INFORMATION
  Report Type: 
  Country: None (occurrence: None)
  Receive Date: 20120822
  Receipt Date: 20120815
  Transmission Date: 20120928
  Serious: No
  Sender: FDA-Public Use
  Company Number: US-BIOGENIDEC-2012BI031890

PATIENT
  Age: 29 Year
  Sex: Female

DRUGS (2)
  1. AVONEX [Suspect]
     Indication: MULTIPLE SCLEROSIS
     Route: 030
     Dates: start: 20100618
  2. AVONEX [Suspect]
     Route: 030
     Dates: start: 20120517

REACTIONS (2)
  - GALLBLADDER DISORDER [None]
  - ABDOMINAL PAIN UPPER [None]
